FAERS Safety Report 9626647 (Version 1)
Quarter: 2013Q4

REPORT INFORMATION
  Report Type: Spontaneous
  Country: US (occurrence: US)
  Receive Date: 20131016
  Receipt Date: 20131016
  Transmission Date: 20140711
  Serious: No
  Sender: FDA-Public Use
  Company Number: US-PFIZER INC-2013292214

PATIENT
  Age: 78 Year
  Sex: Female
  Weight: 58.96 kg

DRUGS (3)
  1. CALAN SR [Suspect]
     Indication: CARDIAC DISORDER
     Dosage: 180 MG, DAILY
  2. CALAN SR [Suspect]
     Dosage: 240 MG, DAILY
  3. VERAPAMIL HCL [Suspect]
     Indication: CARDIAC DISORDER
     Dosage: 180 MG, DAILY

REACTIONS (6)
  - Drug administration error [Unknown]
  - Circumstance or information capable of leading to medication error [Unknown]
  - Blood pressure abnormal [Unknown]
  - Malaise [Unknown]
  - Diarrhoea [Unknown]
  - Gastric disorder [Unknown]
